FAERS Safety Report 10981674 (Version 1)
Quarter: 2015Q1

REPORT INFORMATION
  Report Type: Spontaneous
  Country: US (occurrence: None)
  Receive Date: 20150227
  Receipt Date: 20150227
  Transmission Date: 20150721
  Serious: Yes (Life-Threatening)
  Sender: FDA-Public Use
  Company Number: LMI-2014-00256

PATIENT
  Age: 75 Year
  Sex: Male
  Weight: 89.8 kg

DRUGS (5)
  1. LIPITOR [Concomitant]
     Active Substance: ATORVASTATIN CALCIUM
  2. INSULIN LISPRO [Concomitant]
     Active Substance: INSULIN LISPRO
  3. LOVENOX [Concomitant]
     Active Substance: ENOXAPARIN SODIUM
  4. DEFINITY [Suspect]
     Active Substance: PERFLUTREN
     Indication: ECHOCARDIOGRAM
     Dosage: 2 CC X 2 (1.5 CC DEFINITY DILUTED IN 8.5 CC PRESERVATIVE-FREE NORMAL SALINE)
     Route: 040
     Dates: start: 20140619, end: 20140619
  5. ASPIRIN (ACETYLSALICYLIC ACID) [Concomitant]
     Active Substance: ASPIRIN

REACTIONS (2)
  - Anaphylactic shock [None]
  - Cardiac arrest [None]

NARRATIVE: CASE EVENT DATE: 20140619
